FAERS Safety Report 6550314-4 (Version None)
Quarter: 2010Q1

REPORT INFORMATION
  Report Type: 
  Country: None (occurrence: None)
  Receive Date: 20100119
  Receipt Date: 20090729
  Transmission Date: 20100710
  Serious: Yes (Disabling, Other)
  Sender: FDA-Public Use
  Company Number: APP200900446

PATIENT
  Age: 37 Year
  Sex: Female

DRUGS (2)
  1. XYLOCAINE [Suspect]
     Indication: POSTOPERATIVE ANALGESIA
     Dosage: 2 ML, CONTINUOUS VIA PUMP RIGHT SHOULDER, INTRA-ARTICULAR; 2 ML, CONTINUOUS VIA PUMP LEFT SHOULDER,
     Route: 014
  2. PAIN PUMP [Suspect]
     Indication: POSTOPERATIVE ANALGESIA
     Dosage: RIGHT SHOULDER (WITH PUMP MALFUNCTION); LEFT SHOULDER (WITHOUT PUMP MALFUNCTION)

REACTIONS (4)
  - CHONDROLYSIS [None]
  - JOINT ADHESION [None]
  - MUSCULOSKELETAL PAIN [None]
  - MUSCULOSKELETAL STIFFNESS [None]
